FAERS Safety Report 5307498-5 (Version None)
Quarter: 2007Q2

REPORT INFORMATION
  Report Type: 
  Country: None (occurrence: None)
  Receive Date: 20070425
  Receipt Date: 20070412
  Transmission Date: 20071010
  Serious: Yes (Other)
  Sender: FDA-Public Use
  Company Number: GB-ELI_LILLY_AND_COMPANY-GB200704002569

PATIENT
  Age: 8 Year
  Sex: Male
  Weight: 25.7 kg

DRUGS (1)
  1. STRATTERA [Suspect]
     Indication: ATTENTION DEFICIT/HYPERACTIVITY DISORDER
     Dosage: 1 D/F, DAILY (1/D)
     Route: 048
     Dates: start: 20051003, end: 20070219

REACTIONS (3)
  - AFFECT LABILITY [None]
  - DEPRESSED MOOD [None]
  - SUICIDAL IDEATION [None]
